FAERS Safety Report 6923348-5 (Version None)
Quarter: 2010Q3

REPORT INFORMATION
  Report Type: 
  Country: None (occurrence: None)
  Receive Date: 20100813
  Receipt Date: 20100802
  Transmission Date: 20110219
  Serious: Yes (Life-Threatening, Hospitalization)
  Sender: FDA-Public Use
  Company Number: US-JNJFOC-20100803387

PATIENT
  Age: 58 Year
  Sex: Female
  Weight: 58 kg

DRUGS (5)
  1. SUDAFED PE TRIPLE ACTION CAPLET [Suspect]
     Indication: ABDOMINAL PAIN
     Route: 065
  2. OXYCODONE HCL AND ACETAMINOPHEN [Suspect]
     Indication: ABDOMINAL PAIN
     Route: 065
  3. HYDROCODONE BITARTRATE [Suspect]
     Indication: ABDOMINAL PAIN
     Route: 065
  4. HYDROCODONE BITARTRATE + ACETAMINOPHEN [Suspect]
     Indication: ABDOMINAL PAIN
     Route: 065
  5. DIAZEPAM [Suspect]
     Indication: ABDOMINAL PAIN
     Route: 065

REACTIONS (4)
  - DRUG TOXICITY [None]
  - HEPATIC NECROSIS [None]
  - PANCREATITIS [None]
  - SUBSTANCE ABUSE [None]
